FAERS Safety Report 18150106 (Version 1)
Quarter: 2020Q3

REPORT INFORMATION
  Report Type: Spontaneous
  Country: US (occurrence: US)
  Receive Date: 20200814
  Receipt Date: 20200814
  Transmission Date: 20201103
  Serious: No
  Sender: FDA-Public Use
  Company Number: US-009507513-2007USA007031

PATIENT
  Age: 40 Year
  Sex: Female

DRUGS (3)
  1. ASPIRIN. [Concomitant]
     Active Substance: ASPIRIN
     Indication: ANTIPLATELET THERAPY
     Dosage: 325 MILLIGRAM DAILY
  2. INTEGRILIN [Suspect]
     Active Substance: EPTIFIBATIDE
     Indication: VASCULAR STENT THROMBOSIS
     Dosage: 15 MILLIGRAM
     Route: 042
  3. INTEGRILIN [Suspect]
     Active Substance: EPTIFIBATIDE
     Dosage: ADDITIONAL LOADING DOSE
     Route: 042

REACTIONS (1)
  - Product use in unapproved indication [Unknown]
